FAERS Safety Report 4460865-4 (Version None)
Quarter: 2004Q3

REPORT INFORMATION
  Report Type: 
  Country: None (occurrence: None)
  Receive Date: 20040928
  Receipt Date: 20040517
  Transmission Date: 20050211
  Serious: No
  Sender: FDA-Public Use
  Company Number: US-GLAXOSMITHKLINE-A0511219A

PATIENT
  Age: 72 Year
  Sex: Female
  Weight: 64.1 kg

DRUGS (7)
  1. ADVAIR DISKUS 100/50 [Suspect]
     Indication: ASTHMA
     Dosage: 1PUFF TWICE PER DAY
     Route: 055
     Dates: start: 20010601, end: 20040301
  2. ALBUTEROL [Concomitant]
     Indication: ASTHMA
     Route: 055
     Dates: start: 20010101
  3. SINGULAIR [Concomitant]
     Indication: ASTHMA
     Route: 048
     Dates: start: 20030201
  4. EVISTA [Concomitant]
     Indication: HORMONE REPLACEMENT THERAPY
     Route: 048
     Dates: start: 20011201
  5. LESCOL XL [Concomitant]
     Indication: LIPIDS INCREASED
     Route: 048
     Dates: start: 20011001
  6. CELEXA [Concomitant]
     Indication: DEPRESSION
     Route: 048
     Dates: start: 20010801
  7. LEVOXYL [Concomitant]
     Indication: HYPOTHYROIDISM
     Route: 048
     Dates: start: 20001001

REACTIONS (7)
  - GINGIVAL SWELLING [None]
  - HYPERSENSITIVITY [None]
  - MASTICATION DISORDER [None]
  - ORAL PAIN [None]
  - ORAL SOFT TISSUE DISORDER [None]
  - PAIN [None]
  - TOOTHACHE [None]
